FAERS Safety Report 7519501-2 (Version None)
Quarter: 2011Q2

REPORT INFORMATION
  Report Type: 
  Country: None (occurrence: None)
  Receive Date: 20110602
  Receipt Date: 20110526
  Transmission Date: 20111010
  Serious: No
  Sender: FDA-Public Use
  Company Number: US-JNJFOC-20110512754

PATIENT
  Sex: Female
  Weight: 41.73 kg

DRUGS (8)
  1. GABAPENTIN [Concomitant]
     Dosage: NIGHTLY
     Route: 048
  2. GABAPENTIN [Concomitant]
     Route: 048
  3. FENTANYL-100 [Suspect]
     Route: 062
     Dates: start: 20110525
  4. GABAPENTIN [Concomitant]
     Indication: NEURALGIA
     Route: 048
  5. GABAPENTIN [Concomitant]
     Dosage: NIGHTLY
     Route: 048
  6. GABAPENTIN [Concomitant]
     Indication: CONVULSION
     Dosage: EVERY MORNING
     Route: 048
  7. FENTANYL-100 [Suspect]
     Indication: INTERVERTEBRAL DISC PROTRUSION
     Route: 062
     Dates: start: 20110525
  8. GABAPENTIN [Concomitant]
     Dosage: EVERY MORNING
     Route: 048

REACTIONS (2)
  - WRONG TECHNIQUE IN DRUG USAGE PROCESS [None]
  - DRUG PRESCRIBING ERROR [None]
